FAERS Safety Report 10740138 (Version 1)
Quarter: 2015Q1

REPORT INFORMATION
  Report Type: Spontaneous
  Country: US (occurrence: US)
  Receive Date: 20150127
  Receipt Date: 20150127
  Transmission Date: 20150721
  Serious: No
  Sender: FDA-Public Use
  Company Number: US-TEVA-485215USA

PATIENT
  Sex: Female

DRUGS (2)
  1. ACTOS [Concomitant]
     Active Substance: PIOGLITAZONE HYDROCHLORIDE
  2. METFORMIN [Suspect]
     Active Substance: METFORMIN HYDROCHLORIDE
     Dosage: 2500 MILLIGRAM DAILY;

REACTIONS (7)
  - Muscle spasms [Unknown]
  - Gastrointestinal disorder [Unknown]
  - Adverse event [Unknown]
  - Flushing [Unknown]
  - Blood glucose increased [Unknown]
  - Weight increased [Unknown]
  - Ocular hyperaemia [Unknown]
